FAERS Safety Report 17654204 (Version 2)
Quarter: 2020Q2

REPORT INFORMATION
  Report Type: Spontaneous
  Country: US (occurrence: US)
  Receive Date: 20200410
  Receipt Date: 20200428
  Transmission Date: 20200713
  Serious: Yes (Death, Hospitalization)
  Sender: FDA-Public Use
  Company Number: US-HIKMA PHARMACEUTICALS USA INC.-US-H14001-20-01739

PATIENT
  Sex: Female

DRUGS (6)
  1. DOPAMINE [Suspect]
     Active Substance: DOPAMINE HYDROCHLORIDE
     Indication: PRODUCT USED FOR UNKNOWN INDICATION
     Route: 065
     Dates: start: 20200310
  2. ATROPINE. [Suspect]
     Active Substance: ATROPINE
     Indication: PRODUCT USED FOR UNKNOWN INDICATION
     Route: 065
     Dates: start: 20200310
  3. SODIUM CHLORIDE. [Suspect]
     Active Substance: SODIUM CHLORIDE
     Indication: PRODUCT USED FOR UNKNOWN INDICATION
     Route: 040
     Dates: start: 20200310
  4. BOSENTAN. [Suspect]
     Active Substance: BOSENTAN
     Indication: PULMONARY HYPERTENSION
     Route: 048
     Dates: start: 20200110
  5. METOPROLOL. [Suspect]
     Active Substance: METOPROLOL
     Indication: PRODUCT USED FOR UNKNOWN INDICATION
     Route: 042
     Dates: start: 20200310
  6. AMIODARONE [Suspect]
     Active Substance: AMIODARONE
     Indication: PRODUCT USED FOR UNKNOWN INDICATION
     Route: 040
     Dates: start: 20200310

REACTIONS (17)
  - Pyrexia [Unknown]
  - Multiple organ dysfunction syndrome [Unknown]
  - Respiratory distress [Unknown]
  - Cardiac arrest [Unknown]
  - Respiratory arrest [Unknown]
  - Acute respiratory failure [Fatal]
  - Bradycardia [Unknown]
  - Malaise [Unknown]
  - Chest discomfort [Unknown]
  - Atrial fibrillation [Unknown]
  - Chills [Unknown]
  - Cough [Unknown]
  - Tachycardia [Unknown]
  - Fall [Unknown]
  - Haemorrhage [Unknown]
  - Metapneumovirus infection [Fatal]
  - Pulseless electrical activity [Unknown]
